FAERS Safety Report 15313232 (Version 1)
Quarter: 2018Q3

REPORT INFORMATION
  Report Type: Spontaneous
  Country: IT (occurrence: IT)
  Receive Date: 20180823
  Receipt Date: 20180823
  Transmission Date: 20181010
  Serious: Yes (Hospitalization)
  Sender: FDA-Public Use
  Company Number: IT-009507513-2012SP004375

PATIENT
  Age: 82 Year
  Sex: Female

DRUGS (7)
  1. NAPRILENE [Concomitant]
     Active Substance: ENALAPRIL MALEATE
     Dosage: 5 MG, UNKNOWN
     Route: 065
  2. LASIX [Concomitant]
     Active Substance: FUROSEMIDE
     Dosage: 25 MG, QD
     Route: 048
  3. MIRTAZAPINE. [Suspect]
     Active Substance: MIRTAZAPINE
     Indication: DEPRESSION
     Dosage: 15 MG, QD
     Route: 048
     Dates: start: 20110527, end: 20111125
  4. SIRIO [Concomitant]
     Active Substance: CARBIDOPA\MELEVODOPA
  5. LIMPIDEX [Concomitant]
     Active Substance: LANSOPRAZOLE
     Dosage: UNK UNK, UNKNOWN
     Route: 065
  6. IMOVANE [Suspect]
     Active Substance: ZOPICLONE
     Indication: INSOMNIA
     Dosage: 7.5 MG, QD
     Route: 048
     Dates: start: 20101125, end: 20111125
  7. CARDIOASPIRIN [Concomitant]
     Active Substance: ASPIRIN
     Dosage: 100 MG, UNKNOWN
     Route: 065

REACTIONS (2)
  - Somnolence [Recovering/Resolving]
  - Sopor [Recovering/Resolving]

NARRATIVE: CASE EVENT DATE: 20111125
